FAERS Safety Report 6005617-9 (Version None)
Quarter: 2008Q4

REPORT INFORMATION
  Report Type: 
  Country: None (occurrence: None)
  Receive Date: 20081215
  Receipt Date: 20081208
  Transmission Date: 20090506
  Serious: Yes (Other)
  Sender: FDA-Public Use
  Company Number: POMP-1000354

PATIENT
  Age: 33 Year
  Sex: Female
  Weight: 51.2 kg

DRUGS (4)
  1. MYOZYME [Suspect]
     Indication: GLYCOGEN STORAGE DISEASE TYPE II
     Dosage: 1000 MG/DAY, Q2W, INTRAVENOUS
     Route: 042
     Dates: start: 20080201, end: 20081009
  2. MYOZYME [Suspect]
  3. CHLORPHENIRAMINE MALEATE [Concomitant]
  4. ACETAMINOPHEN [Concomitant]

REACTIONS (11)
  - BLOOD PRESSURE INCREASED [None]
  - DIZZINESS [None]
  - DYSPNOEA [None]
  - FEELING HOT [None]
  - FLUSHING [None]
  - HEART RATE DECREASED [None]
  - HEART RATE INCREASED [None]
  - HYPOTENSION [None]
  - IMMUNOLOGY TEST ABNORMAL [None]
  - PALLOR [None]
  - SYNCOPE [None]
